FAERS Safety Report 9170169 (Version 3)
Quarter: 2013Q3

REPORT INFORMATION
  Report Type: Spontaneous
  Country: BR (occurrence: BR)
  Receive Date: 20130319
  Receipt Date: 20130821
  Transmission Date: 20140515
  Serious: Yes (Other)
  Sender: FDA-Public Use
  Company Number: PHHY2013BR024593

PATIENT
  Sex: Female

DRUGS (1)
  1. DIOVAN AMLO FIX [Suspect]
     Indication: HYPERTENSION
     Dosage: 1 DF (160 MG VALS AND 5 MG AMLO), DAILY
     Route: 048

REACTIONS (8)
  - Fall [Recovered/Resolved]
  - Feeling abnormal [Unknown]
  - Labyrinthitis [Unknown]
  - Local swelling [Recovered/Resolved]
  - Blood pressure abnormal [Recovered/Resolved]
  - Constipation [Recovered/Resolved]
  - Paraesthesia [Not Recovered/Not Resolved]
  - Back pain [Not Recovered/Not Resolved]
